FAERS Safety Report 19665818 (Version 1)
Quarter: 2021Q3

REPORT INFORMATION
  Report Type: Spontaneous
  Country: US (occurrence: US)
  Receive Date: 20210805
  Receipt Date: 20210805
  Transmission Date: 20211014
  Serious: Yes (Hospitalization)
  Sender: FDA-Public Use
  Company Number: None

PATIENT
  Age: 51 Year
  Sex: Male

DRUGS (4)
  1. LIPITOR [Concomitant]
     Active Substance: ATORVASTATIN CALCIUM
  2. BRAFTOVI [Suspect]
     Active Substance: ENCORAFENIB
     Route: 048
     Dates: start: 20210728, end: 20210730
  3. MEKTOVI [Suspect]
     Active Substance: BINIMETINIB
     Route: 048
     Dates: start: 20210728, end: 20210730
  4. GABAPENTIN. [Concomitant]
     Active Substance: GABAPENTIN

REACTIONS (4)
  - Aphasia [None]
  - Speech disorder [None]
  - Amnesia [None]
  - Confusional state [None]

NARRATIVE: CASE EVENT DATE: 20210730
